FAERS Safety Report 14583303 (Version 2)
Quarter: 2019Q1

REPORT INFORMATION
  Report Type: Spontaneous
  Country: US (occurrence: US)
  Receive Date: 20180228
  Receipt Date: 20190327
  Transmission Date: 20190417
  Serious: No
  Sender: FDA-Public Use
  Company Number: US-MYLANLABS-2018M1011522

PATIENT
  Sex: Male

DRUGS (1)
  1. FENTANYL. [Suspect]
     Active Substance: FENTANYL
     Indication: PAIN
     Dosage: 1.28 MG, TOTAL
     Route: 062

REACTIONS (7)
  - Insomnia [Unknown]
  - Feeling abnormal [Unknown]
  - Loss of personal independence in daily activities [Unknown]
  - Drug ineffective [Unknown]
  - Pain [Unknown]
  - Fatigue [Unknown]
  - Hunger [Unknown]
